FAERS Safety Report 7656098-0 (Version None)
Quarter: 2011Q3

REPORT INFORMATION
  Report Type: 
  Country: None (occurrence: None)
  Receive Date: 20110804
  Receipt Date: 20110801
  Transmission Date: 20111222
  Serious: Yes (Hospitalization)
  Sender: FDA-Public Use
  Company Number: FR-ROCHE-794080

PATIENT
  Sex: Male
  Weight: 65 kg

DRUGS (4)
  1. BEVACIZUMAB [Suspect]
     Indication: NON-SMALL CELL LUNG CANCER
     Route: 065
     Dates: start: 20101015, end: 20110211
  2. FOLIC ACID [Concomitant]
     Indication: PREMEDICATION
     Dates: start: 20101015
  3. VITAMIN B-12 [Concomitant]
     Indication: PREMEDICATION
     Dates: start: 20101015
  4. PEMETREXED [Suspect]
     Indication: NON-SMALL CELL LUNG CANCER
     Route: 042
     Dates: start: 20101015

REACTIONS (1)
  - FEBRILE BONE MARROW APLASIA [None]
